FAERS Safety Report 13534441 (Version 19)
Quarter: 2020Q2

REPORT INFORMATION
  Report Type: Report from Study
  Country: CO (occurrence: CO)
  Receive Date: 20170511
  Receipt Date: 20200518
  Transmission Date: 20200713
  Serious: Yes (Life-Threatening, Hospitalization, Disabling, Other)
  Sender: FDA-Public Use
  Company Number: CO-AMGEN-COLSL2017063773

PATIENT
  Age: 69 Year
  Sex: Male

DRUGS (8)
  1. NPLATE [Suspect]
     Active Substance: ROMIPLOSTIM
     Dosage: 250 MICROGRAM, QWK
     Route: 058
     Dates: start: 20160718
  2. NPLATE [Suspect]
     Active Substance: ROMIPLOSTIM
     Dosage: 500 MICROGRAM, QWK
     Route: 058
  3. NPLATE [Suspect]
     Active Substance: ROMIPLOSTIM
     Dosage: 250 MCG, QWK
     Route: 058
     Dates: start: 20181031
  4. NPLATE [Suspect]
     Active Substance: ROMIPLOSTIM
     Dosage: UNK, UNK
     Route: 065
  5. NPLATE [Suspect]
     Active Substance: ROMIPLOSTIM
     Dosage: 250 MICROGRAM, QWK
     Route: 058
     Dates: start: 20170516
  6. NPLATE [Suspect]
     Active Substance: ROMIPLOSTIM
     Dosage: 500 MICROGRAM, QWK
     Route: 058
  7. NPLATE [Suspect]
     Active Substance: ROMIPLOSTIM
     Indication: IMMUNE THROMBOCYTOPENIA
     Dosage: 345 MICROGRAM, QWK
     Route: 058
     Dates: start: 20160621
  8. NPLATE [Suspect]
     Active Substance: ROMIPLOSTIM
     Dosage: 360 MICROGRAM, QWK
     Route: 058

REACTIONS (15)
  - Gait disturbance [Not Recovered/Not Resolved]
  - Mouth haemorrhage [Not Recovered/Not Resolved]
  - Overweight [Unknown]
  - Diverticular perforation [Recovered/Resolved]
  - Mobility decreased [Not Recovered/Not Resolved]
  - Off label use [Not Recovered/Not Resolved]
  - Petechiae [Not Recovered/Not Resolved]
  - Thrombocytosis [Recovered/Resolved]
  - Weight decreased [Recovered/Resolved]
  - Intentional product misuse [Not Recovered/Not Resolved]
  - Peritonitis [Recovered/Resolved]
  - Thrombocytopenia [Not Recovered/Not Resolved]
  - Decreased immune responsiveness [Unknown]
  - Treatment failure [Not Recovered/Not Resolved]
  - Muscle atrophy [Recovering/Resolving]

NARRATIVE: CASE EVENT DATE: 2017
